FAERS Safety Report 8302069-0 (Version None)
Quarter: 2012Q2

REPORT INFORMATION
  Report Type: 
  Country: None (occurrence: None)
  Receive Date: 20120420
  Receipt Date: 20120411
  Transmission Date: 20120825
  Serious: Yes (Death, Hospitalization, Other)
  Sender: FDA-Public Use
  Company Number: US-MERCK-0908USA02519

PATIENT
  Age: 82 Year
  Sex: Female
  Weight: 65 kg

DRUGS (8)
  1. FOSAMAX [Suspect]
     Route: 048
     Dates: start: 20050101, end: 20060101
  2. FOSAMAX [Suspect]
     Route: 048
     Dates: start: 20050101, end: 20060101
  3. FOSAMAX [Suspect]
     Route: 065
     Dates: start: 20030901, end: 20031101
  4. FOSAMAX [Suspect]
     Indication: OSTEOPOROSIS
     Route: 048
     Dates: start: 20040101, end: 20060101
  5. FOSAMAX [Suspect]
     Route: 065
     Dates: start: 20030901, end: 20031101
  6. ZOMETA [Suspect]
     Route: 065
     Dates: start: 20040204, end: 20060517
  7. FOSAMAX [Suspect]
     Indication: BREAST CANCER
     Route: 048
     Dates: start: 20040101, end: 20060101
  8. ZOMETA [Suspect]
     Route: 065
     Dates: start: 20031128, end: 20040105

REACTIONS (22)
  - BREAST CANCER RECURRENT [None]
  - HEPATIC NEOPLASM [None]
  - JAW FRACTURE [None]
  - ORAL INFECTION [None]
  - INFECTION [None]
  - HAEMOGLOBIN DECREASED [None]
  - OSTEONECROSIS OF JAW [None]
  - ASTHENIA [None]
  - CATARACT [None]
  - GAIT DISTURBANCE [None]
  - MASTICATION DISORDER [None]
  - LUNG NEOPLASM [None]
  - GENERAL PHYSICAL HEALTH DETERIORATION [None]
  - DENTAL CARIES [None]
  - FISTULA DISCHARGE [None]
  - DEATH [None]
  - ENTEROCOCCAL INFECTION [None]
  - LYMPHADENITIS [None]
  - MALIGNANT PLEURAL EFFUSION [None]
  - TOOTH INFECTION [None]
  - TEMPOROMANDIBULAR JOINT SYNDROME [None]
  - ABDOMINAL DISCOMFORT [None]
